FAERS Safety Report 6003993-4 (Version None)
Quarter: 2008Q4

REPORT INFORMATION
  Report Type: 
  Country: None (occurrence: None)
  Receive Date: 20081216
  Receipt Date: 20081215
  Transmission Date: 20090506
  Serious: Yes (Other)
  Sender: FDA-Public Use
  Company Number: US-BAYER-200830072NA

PATIENT
  Age: 40 Year
  Sex: Female

DRUGS (1)
  1. YAZ [Suspect]
     Indication: CONTRACEPTION
     Route: 048
     Dates: start: 20080401

REACTIONS (6)
  - FEELING ABNORMAL [None]
  - LETHARGY [None]
  - LEUKAEMIA [None]
  - MALAISE [None]
  - OEDEMA PERIPHERAL [None]
  - WEIGHT INCREASED [None]
